FAERS Safety Report 11224228 (Version 1)
Quarter: 2015Q2

REPORT INFORMATION
  Report Type: Spontaneous
  Country: US (occurrence: US)
  Receive Date: 20150629
  Receipt Date: 20150629
  Transmission Date: 20150821
  Serious: No
  Sender: FDA-Public Use
  Company Number: US-BAYER-2015-363107

PATIENT
  Sex: Male

DRUGS (1)
  1. MIRENA [Suspect]
     Active Substance: LEVONORGESTREL
     Dosage: UNK

REACTIONS (1)
  - Penile pain [None]

NARRATIVE: CASE EVENT DATE: 2015
